FAERS Safety Report 9164666 (Version 2)
Quarter: 2013Q1

REPORT INFORMATION
  Report Type: Spontaneous
  Country: CA (occurrence: None)
  Receive Date: 20130226
  Receipt Date: 20130307
  Transmission Date: 20140127
  Serious: No
  Sender: FDA-Public Use
  Company Number: VAL_01420_2013

PATIENT
  Age: 72 Year
  Sex: Male

DRUGS (5)
  1. METOPROLOL [Suspect]
     Indication: CARDIAC FAILURE
     Route: 048
  2. METOPROLOL [Suspect]
     Indication: OFF LABEL USE
     Route: 048
  3. RAMIPRIL [Concomitant]
  4. WARFARIN [Concomitant]
  5. DILTIAZEM [Concomitant]

REACTIONS (5)
  - Atrial fibrillation [None]
  - Hypertension [None]
  - Cardiac failure [None]
  - Ejection fraction decreased [None]
  - Renal impairment [None]
